FAERS Safety Report 5872610-6 (Version None)
Quarter: 2008Q3

REPORT INFORMATION
  Report Type: 
  Country: None (occurrence: None)
  Receive Date: 20080818
  Receipt Date: 20080421
  Transmission Date: 20090109
  Serious: No
  Sender: FDA-Public Use
  Company Number: 20084879

PATIENT
  Age: 51 Year
  Sex: Female

DRUGS (2)
  1. LIORESAL [Suspect]
     Indication: MUSCLE SPASTICITY
     Dosage: 294.7 MCG, DAILY, INTRATHECAL
     Route: 037
  2. MORPHINE SULFATE [Concomitant]

REACTIONS (2)
  - DRUG INEFFECTIVE [None]
  - PAIN [None]
